FAERS Safety Report 16367580 (Version 5)
Quarter: 2019Q4

REPORT INFORMATION
  Report Type: Spontaneous
  Country: US (occurrence: US)
  Receive Date: 20190529
  Receipt Date: 20191009
  Transmission Date: 20200122
  Serious: No
  Sender: FDA-Public Use
  Company Number: US-PFIZER INC-2019223396

PATIENT
  Age: 75 Year
  Sex: Female

DRUGS (3)
  1. IBRANCE [Suspect]
     Active Substance: PALBOCICLIB
     Dosage: 100 MG, CYCLIC(100 MG DAILY X 21 DAYS, THEN OFF 7 DAYS)
     Dates: start: 201812
  2. XGEVA [Concomitant]
     Active Substance: DENOSUMAB
     Dosage: UNK
  3. IBRANCE [Suspect]
     Active Substance: PALBOCICLIB
     Indication: BREAST CANCER METASTATIC
     Dosage: UNK, CYCLIC ( 1 PER DAY/ 21 DAYS)
     Dates: start: 199007

REACTIONS (2)
  - Balance disorder [Not Recovered/Not Resolved]
  - Night sweats [Not Recovered/Not Resolved]
